FAERS Safety Report 16217753 (Version 2)
Quarter: 2019Q3

REPORT INFORMATION
  Report Type: Spontaneous
  Country: US (occurrence: US)
  Receive Date: 20190419
  Receipt Date: 20190807
  Transmission Date: 20191004
  Serious: No
  Sender: FDA-Public Use
  Company Number: US-SA-2019SA109210

PATIENT
  Age: 41 Year
  Sex: Female

DRUGS (1)
  1. AUBAGIO [Suspect]
     Active Substance: TERIFLUNOMIDE
     Indication: MULTIPLE SCLEROSIS
     Dosage: UNK UNK, QD
     Route: 048
     Dates: start: 20190415

REACTIONS (5)
  - Condition aggravated [Not Recovered/Not Resolved]
  - Abdominal discomfort [Unknown]
  - Depressed mood [Unknown]
  - Alopecia [Not Recovered/Not Resolved]
  - Decreased interest [Unknown]

NARRATIVE: CASE EVENT DATE: 20190416
